FAERS Safety Report 5394760-3 (Version None)
Quarter: 2007Q3

REPORT INFORMATION
  Report Type: 
  Country: None (occurrence: None)
  Receive Date: 20070720
  Receipt Date: 20070711
  Transmission Date: 20080115
  Serious: Yes (Death, Hospitalization)
  Sender: FDA-Public Use
  Company Number: SPI200700373

PATIENT
  Age: 90 Year
  Sex: Female
  Weight: 45.4 kg

DRUGS (4)
  1. AMITIZA (LUBIPROSTON) CAPSULE, 24MCG [Suspect]
     Indication: CONSTIPATION
     Dosage: 24 MCG, BID, ORAL
     Route: 048
     Dates: start: 20070510, end: 20070513
  2. SINEMET [Concomitant]
  3. COMTAN [Concomitant]
  4. KLONOPIN [Concomitant]

REACTIONS (6)
  - ANOREXIA [None]
  - DIARRHOEA [None]
  - DYSPHAGIA [None]
  - HEART RATE INCREASED [None]
  - NAUSEA [None]
  - PNEUMONIA ASPIRATION [None]
